FAERS Safety Report 21157212 (Version 2)
Quarter: 2022Q3

REPORT INFORMATION
  Report Type: Report from Study
  Country: US (occurrence: None)
  Receive Date: 20220801
  Receipt Date: 20220828
  Transmission Date: 20221027
  Serious: Yes (Death, Hospitalization, Other)
  Sender: FDA-Public Use
  Company Number: 2022A269231

PATIENT
  Age: 25227 Day
  Sex: Female

DRUGS (21)
  1. TAGRISSO [Suspect]
     Active Substance: OSIMERTINIB
     Route: 048
  2. TAGRISSO [Suspect]
     Active Substance: OSIMERTINIB
     Route: 048
  3. OMEPRAZOLE [Suspect]
     Active Substance: OMEPRAZOLE
     Route: 048
  4. ACETAMINOPHEN [Concomitant]
     Active Substance: ACETAMINOPHEN
  5. BONIVA [Concomitant]
     Active Substance: IBANDRONATE SODIUM
  6. CENTRUM SILVER WOMEN [Concomitant]
  7. CLARITIN [Concomitant]
     Active Substance: LORATADINE
  8. CLINDAGEL [Concomitant]
     Active Substance: CLINDAMYCIN PHOSPHATE
  9. DEXAMETHASONE [Concomitant]
     Active Substance: DEXAMETHASONE
  10. DEXAMETHASONE [Concomitant]
     Active Substance: DEXAMETHASONE
  11. DOXYCYCLINE [Concomitant]
     Active Substance: DOXYCYCLINE
  12. FERROUS SULFATE [Concomitant]
     Active Substance: FERROUS SULFATE
  13. FOLIC ACID [Concomitant]
     Active Substance: FOLIC ACID
  14. IMODIUM [Concomitant]
     Active Substance: LOPERAMIDE HYDROCHLORIDE
  15. IRON [Concomitant]
     Active Substance: IRON
  16. LASIX [Concomitant]
     Active Substance: FUROSEMIDE
  17. OXYBUTYNIN [Concomitant]
     Active Substance: OXYBUTYNIN
  18. PANTOPRAZOLE [Concomitant]
     Active Substance: PANTOPRAZOLE
  19. PROCHLORPERAZINE MALEATE [Concomitant]
     Active Substance: PROCHLORPERAZINE MALEATE
  20. TARCEVA [Concomitant]
     Active Substance: ERLOTINIB HYDROCHLORIDE
  21. VITAMIN D3 [Concomitant]
     Active Substance: CHOLECALCIFEROL

REACTIONS (13)
  - Death [Fatal]
  - Metastases to central nervous system [Unknown]
  - Vasogenic cerebral oedema [Unknown]
  - Fatigue [Unknown]
  - Dyspnoea [Unknown]
  - Rash [Unknown]
  - Diarrhoea [Unknown]
  - Epistaxis [Unknown]
  - Eye haemorrhage [Unknown]
  - Musculoskeletal discomfort [Unknown]
  - Dry mouth [Unknown]
  - Dry throat [Unknown]
  - Aphasia [Unknown]

NARRATIVE: CASE EVENT DATE: 20211101
